FAERS Safety Report 24218531 (Version 1)
Quarter: 2024Q3

REPORT INFORMATION
  Report Type: Spontaneous
  Country: US (occurrence: US)
  Receive Date: 20240816
  Receipt Date: 20240816
  Transmission Date: 20241017
  Serious: No
  Sender: BIOCON
  Company Number: US-MIMS-BCONMC-6032

PATIENT

DRUGS (1)
  1. INSULIN GLARGINE [Suspect]
     Active Substance: INSULIN GLARGINE
     Indication: Diabetes mellitus
     Dosage: 2 UNITS/ML, BID (EVERY 12 HOURS)
     Route: 058
     Dates: start: 20220518

REACTIONS (3)
  - Device issue [Unknown]
  - Device delivery system issue [Unknown]
  - Device defective [Unknown]

NARRATIVE: CASE EVENT DATE: 20240705
